FAERS Safety Report 5736865-0 (Version None)
Quarter: 2008Q2

REPORT INFORMATION
  Report Type: 
  Country: None (occurrence: None)
  Receive Date: 20080508
  Receipt Date: 20080501
  Transmission Date: 20081010
  Serious: Yes (Death, Life-Threatening, Hospitalization, Other)
  Sender: FDA-Public Use
  Company Number: 2008US000568

PATIENT
  Age: 47 Year
  Sex: Male
  Weight: 83.8 kg

DRUGS (6)
  1. PROGRAF [Suspect]
     Indication: STEM CELL TRANSPLANT
     Dosage: ORAL
     Route: 048
     Dates: start: 20071010, end: 20080223
  2. VORICONAZOLE(VORICONAZOLE) [Suspect]
     Indication: PROPHYLAXIS
     Dosage: 400 MG, UID/QD, ORAL
     Route: 048
     Dates: start: 20071030, end: 20080103
  3. VORICONAZOLE(VORICONAZOLE) [Suspect]
     Indication: PROPHYLAXIS
     Dosage: 400 MG, UID/QD, ORAL
     Route: 048
     Dates: start: 20071011
  4. METRONIDAZOLE [Concomitant]
  5. RABEPRAZOLE SODIUM [Concomitant]
  6. LOPERAMIDE (LOPERAMIDE OXIDE) [Concomitant]

REACTIONS (14)
  - AUTOIMMUNE HEPATITIS [None]
  - CHOLESTASIS [None]
  - CHRONIC HEPATITIS [None]
  - CLOSTRIDIAL INFECTION [None]
  - DEHYDRATION [None]
  - ENTEROBACTER INFECTION [None]
  - HAEMODIALYSIS [None]
  - HEPATIC CIRRHOSIS [None]
  - HEPATORENAL SYNDROME [None]
  - PANCYTOPENIA [None]
  - PERITONITIS BACTERIAL [None]
  - RENAL FAILURE ACUTE [None]
  - THERAPEUTIC AGENT TOXICITY [None]
  - VIRAL INFECTION [None]
